FAERS Safety Report 5131805-X (Version None)
Quarter: 2006Q4

REPORT INFORMATION
  Report Type: 
  Country: None (occurrence: None)
  Receive Date: 20061016
  Receipt Date: 20061003
  Transmission Date: 20070319
  Serious: Yes (Other)
  Sender: FDA-Public Use
  Company Number: 2006110034

PATIENT
  Age: 50 Year
  Sex: Male
  Weight: 67 kg

DRUGS (2)
  1. ATORVASTATIN CALCIUM [Suspect]
     Indication: HYPERCHOLESTEROLAEMIA
     Dosage: 10 MG (10 MG, 1 IN 1 D); ORAL
     Route: 048
     Dates: end: 20060615
  2. GRAPEFRUIT JUICE (CITRUS PARADISHI FRUIT JUICE) [Suspect]

REACTIONS (6)
  - FOOD INTERACTION [None]
  - HAEMORRHAGE [None]
  - HAEMORRHOIDS [None]
  - MUCOUS MEMBRANE DISORDER [None]
  - PROCTITIS [None]
  - RECTAL HAEMORRHAGE [None]
